FAERS Safety Report 9188505 (Version 2)
Quarter: 2013Q2

REPORT INFORMATION
  Report Type: Spontaneous
  Country: DE (occurrence: DE)
  Receive Date: 20130325
  Receipt Date: 20130410
  Transmission Date: 20140414
  Serious: Yes (Other)
  Sender: FDA-Public Use
  Company Number: PHHY2012DE128167

PATIENT
  Age: 92 Year
  Sex: Female

DRUGS (1)
  1. EXELON PATCH [Suspect]
     Indication: DEMENTIA ALZHEIMER^S TYPE
     Dosage: 9.5 MG, DAILY (24 HOUR)
     Route: 062
     Dates: start: 201109

REACTIONS (4)
  - Ketoacidosis [Unknown]
  - Dementia Alzheimer^s type [Unknown]
  - Blood glucose decreased [Unknown]
  - Fall [Not Recovered/Not Resolved]
